FAERS Safety Report 14240007 (Version 1)
Quarter: 2017Q4

REPORT INFORMATION
  Report Type: Spontaneous
  Country: US (occurrence: US)
  Receive Date: 20171128
  Receipt Date: 20171128
  Transmission Date: 20180321
  Serious: No
  Sender: FDA-Public Use
  Company Number: None

PATIENT
  Age: 5 Year
  Sex: Female
  Weight: 21.6 kg

DRUGS (1)
  1. MIRALAX [Suspect]
     Active Substance: POLYETHYLENE GLYCOL 3350
     Indication: CONSTIPATION
     Dosage: 34 ONCE-DAILY DOSES; ORAL?
     Route: 048
     Dates: start: 20171018, end: 20171127

REACTIONS (13)
  - Abdominal pain upper [None]
  - Epistaxis [None]
  - Tic [None]
  - Headache [None]
  - Restlessness [None]
  - Disturbance in attention [None]
  - Eructation [None]
  - Anger [None]
  - Personality change [None]
  - Anxiety [None]
  - Cough [None]
  - Abnormal behaviour [None]
  - Mood swings [None]

NARRATIVE: CASE EVENT DATE: 20171127
